FAERS Safety Report 6825586-9 (Version None)
Quarter: 2010Q3

REPORT INFORMATION
  Report Type: 
  Country: None (occurrence: None)
  Receive Date: 20100708
  Receipt Date: 20070222
  Transmission Date: 20110219
  Serious: No
  Sender: FDA-Public Use
  Company Number: US-PFIZER INC-2007001555

PATIENT
  Sex: Male

DRUGS (5)
  1. CHANTIX [Suspect]
     Indication: SMOKING CESSATION THERAPY
     Dates: start: 20061216, end: 20061201
  2. THORAZINE [Concomitant]
  3. TOPAMAX [Concomitant]
  4. BENADRYL [Concomitant]
  5. TRAZODONE [Concomitant]

REACTIONS (3)
  - ABDOMINAL DISCOMFORT [None]
  - HYPERSENSITIVITY [None]
  - VOMITING [None]
